FAERS Safety Report 23890218 (Version 2)
Quarter: 2024Q2

REPORT INFORMATION
  Report Type: Report from Study
  Country: IT (occurrence: IT)
  Receive Date: 20240523
  Receipt Date: 20240527
  Transmission Date: 20240716
  Serious: Yes (Hospitalization, Other)
  Sender: FDA-Public Use
  Company Number: IT-BAXTER-2024BAX018207

PATIENT
  Age: 84 Year
  Sex: Male

DRUGS (7)
  1. CLINIMIX E [Suspect]
     Active Substance: ALANINE\AMINO ACIDS\ARGININE\CALCIUM CHLORIDE\DEXTROSE\GLYCINE\HISTIDINE\ISOLEUCINE\LEUCINE\LYSINE\M
     Indication: Parenteral nutrition
     Dosage: (CLINIMIX 5/16 OR 5/17.5 N17G35E 1.5L)
     Route: 065
     Dates: start: 20240312, end: 20240323
  2. CLINIMIX E [Suspect]
     Active Substance: ALANINE\AMINO ACIDS\ARGININE\CALCIUM CHLORIDE\DEXTROSE\GLYCINE\HISTIDINE\ISOLEUCINE\LEUCINE\LYSINE\M
     Dosage: (CLINIMIX 5/16 OR 5/17.5 N17G35E 1.5L)
     Route: 065
     Dates: start: 20240324
  3. OLIVE OIL\SOYBEAN OIL [Suspect]
     Active Substance: OLIVE OIL\SOYBEAN OIL
     Indication: Parenteral nutrition
     Dosage: (CLINOLEIC 20% 250ML)
     Route: 065
     Dates: start: 20240315, end: 20240429
  4. OLIVE OIL\SOYBEAN OIL [Suspect]
     Active Substance: OLIVE OIL\SOYBEAN OIL
     Dosage: (CLINOLEIC 20% 250ML)
     Route: 065
     Dates: start: 20240430
  5. LASIX [Suspect]
     Active Substance: FUROSEMIDE
     Dosage: AT AN UNSPECIFIED DOSE AND FREQUENCY
     Route: 065
  6. ESOMEPRAZOLE [Suspect]
     Active Substance: ESOMEPRAZOLE
     Dosage: AT AN UNSPECIFIED DOSE AND FREQUENCY
     Route: 065
  7. UNSPECIFIED INGREDIENT [Suspect]
     Active Substance: UNSPECIFIED INGREDIENT
     Route: 065

REACTIONS (6)
  - Mental impairment [Recovered/Resolved]
  - General physical health deterioration [Recovered/Resolved]
  - Allergic reaction to excipient [Recovered/Resolved]
  - Erythema [Recovered/Resolved]
  - Erythema [Recovered/Resolved]
  - Illness [Unknown]
